FAERS Safety Report 19773896 (Version 1)
Quarter: 2021Q3

REPORT INFORMATION
  Report Type: Report from Study
  Country: FR (occurrence: FR)
  Receive Date: 20210901
  Receipt Date: 20210901
  Transmission Date: 20211014
  Serious: Yes (Hospitalization, Other)
  Sender: FDA-Public Use
  Company Number: FR-BRISTOL-MYERS SQUIBB COMPANY-BMS-2021-024170

PATIENT
  Age: 67 Year
  Sex: Male
  Weight: 59 kg

DRUGS (2)
  1. NIVOLUMAB [Suspect]
     Active Substance: NIVOLUMAB
     Indication: GASTRIC CANCER
     Dosage: 198 MILLIGRAM, Q2WK
     Route: 042
     Dates: start: 20210209
  2. IPILIMUMAB [Suspect]
     Active Substance: IPILIMUMAB
     Indication: GASTRIC CANCER
     Dosage: 66 MILLIGRAM, Q6WK
     Route: 042
     Dates: start: 20210209

REACTIONS (3)
  - Anastomotic fistula [Recovered/Resolved]
  - Post procedural complication [Recovered/Resolved]
  - Gastrointestinal stenosis [Unknown]

NARRATIVE: CASE EVENT DATE: 202103
